FAERS Safety Report 12800016 (Version 1)
Quarter: 2016Q3

REPORT INFORMATION
  Report Type: Report from Study
  Country: US (occurrence: US)
  Receive Date: 20160930
  Receipt Date: 20160930
  Transmission Date: 20161109
  Serious: Yes (Other)
  Sender: FDA-Public Use
  Company Number: US-AMGEN-USASL2016130525

PATIENT
  Age: 79 Year
  Sex: Female

DRUGS (2)
  1. EUCERA [Concomitant]
  2. PROLIA [Suspect]
     Active Substance: DENOSUMAB
     Indication: OSTEOPOROSIS
     Dosage: (ONCE IN A YEAR)
     Route: 065
     Dates: start: 2014

REACTIONS (12)
  - Pain in extremity [Unknown]
  - Speech disorder [Not Recovered/Not Resolved]
  - Balance disorder [Unknown]
  - Condition aggravated [Unknown]
  - Pain [Unknown]
  - Inappropriate schedule of drug administration [Unknown]
  - Dysstasia [Unknown]
  - Gait disturbance [Unknown]
  - Transient ischaemic attack [Unknown]
  - Rib fracture [Unknown]
  - Fall [Unknown]
  - Back pain [Unknown]

NARRATIVE: CASE EVENT DATE: 201604
